FAERS Safety Report 13944742 (Version 1)
Quarter: 2017Q3

REPORT INFORMATION
  Report Type: Spontaneous
  Country: US (occurrence: US)
  Receive Date: 20170907
  Receipt Date: 20170907
  Transmission Date: 20171128
  Serious: No
  Sender: FDA-Public Use
  Company Number: US-ROCHE-GNE324669

PATIENT
  Age: 91 Year
  Sex: Female

DRUGS (1)
  1. RITUXAN [Suspect]
     Active Substance: RITUXIMAB
     Indication: LYMPHOMA
     Dosage: 700 MG, 1/WEEK, DOSE INTERRUPTED, RESTARTED ON 21 SEP 2011
     Route: 042
     Dates: start: 20110907

REACTIONS (3)
  - Tenderness [Recovering/Resolving]
  - Unevaluable event [Recovering/Resolving]
  - Swelling [Recovering/Resolving]

NARRATIVE: CASE EVENT DATE: 20110921
